FAERS Safety Report 5217723-7 (Version None)
Quarter: 2007Q1

REPORT INFORMATION
  Report Type: 
  Country: None (occurrence: None)
  Receive Date: 20070124
  Receipt Date: 20070117
  Transmission Date: 20070707
  Serious: Yes (Hospitalization)
  Sender: FDA-Public Use
  Company Number: FR-BAYER-200710055BFR

PATIENT
  Age: 59 Year
  Sex: Male

DRUGS (2)
  1. CIPROFLOXACIN [Suspect]
     Indication: BACTERIAL PYELONEPHRITIS
     Dosage: TOTAL DAILY DOSE: 1 G  UNIT DOSE: 500 MG
     Route: 048
     Dates: start: 20070116
  2. FORTUM [Concomitant]
     Indication: BACTERIAL PYELONEPHRITIS
     Dosage: TOTAL DAILY DOSE: 6 G
     Dates: start: 20070116

REACTIONS (1)
  - DEPRESSED LEVEL OF CONSCIOUSNESS [None]
